FAERS Safety Report 8122154-6 (Version None)
Quarter: 2012Q1

REPORT INFORMATION
  Report Type: 
  Country: None (occurrence: None)
  Receive Date: 20120208
  Receipt Date: 20120131
  Transmission Date: 20120608
  Serious: Yes (Death, Other)
  Sender: FDA-Public Use
  Company Number: FR-JNJFOC-20110204763

PATIENT
  Sex: Female

DRUGS (3)
  1. STELARA [Suspect]
     Indication: ERYTHRODERMIC PSORIASIS
     Route: 058
     Dates: start: 20100807
  2. STELARA [Suspect]
     Route: 058
     Dates: start: 20100901
  3. ANTIDEPRESSANT NOS [Concomitant]
     Indication: DEPRESSION

REACTIONS (9)
  - SEPTIC EMBOLUS [None]
  - MALNUTRITION [None]
  - ENDOCARDITIS [None]
  - CONFUSIONAL STATE [None]
  - STREPTOCOCCAL INFECTION [None]
  - LEUKOCYTOSIS [None]
  - DRUG INEFFECTIVE FOR UNAPPROVED INDICATION [None]
  - LYMPHOPENIA [None]
  - HYPOALBUMINAEMIA [None]
